FAERS Safety Report 11071419 (Version 5)
Quarter: 2018Q2

REPORT INFORMATION
  Report Type: Spontaneous
  Country: US (occurrence: US)
  Receive Date: 20150428
  Receipt Date: 20180524
  Transmission Date: 20180711
  Serious: Yes (Hospitalization, Other)
  Sender: FDA-Public Use
  Company Number: US-ENDO PHARMACEUTICALS INC.-201411020

PATIENT
  Age: 38 Year
  Sex: Male
  Weight: 83.9 kg

DRUGS (5)
  1. TESTIM [Suspect]
     Active Substance: TESTOSTERONE
     Indication: HYPOGONADISM
  2. TESTOSTERONE CYPIONATE. [Suspect]
     Active Substance: TESTOSTERONE CYPIONATE
     Indication: ANDROGEN REPLACEMENT THERAPY
     Dosage: 200 MG, UNKNOWN
     Route: 065
     Dates: start: 201212
  3. TESTOSTERONE. [Suspect]
     Active Substance: TESTOSTERONE
     Indication: MUSCLE BUILDING THERAPY
     Dosage: UNK UNKNOWN, UNKNOWN
     Route: 065
     Dates: end: 1991
  4. TESTIM [Suspect]
     Active Substance: TESTOSTERONE
     Indication: BLOOD TESTOSTERONE DECREASED
     Dosage: UNK UNKNOWN, DAILY
     Route: 062
     Dates: start: 20080714, end: 201212
  5. ANDROGEL [Suspect]
     Active Substance: TESTOSTERONE
     Indication: BLOOD TESTOSTERONE DECREASED
     Dosage: UNK UNKNOWN, UNKNOWN
     Route: 061
     Dates: start: 20091203

REACTIONS (14)
  - Pulmonary infarction [Unknown]
  - Myocardial infarction [Unknown]
  - Intentional overdose [Unknown]
  - Disturbance in attention [Unknown]
  - Atelectasis [Unknown]
  - Deep vein thrombosis [Unknown]
  - Angina pectoris [Unknown]
  - Deep vein thrombosis [Unknown]
  - Peripheral venous disease [Unknown]
  - Thrombophlebitis superficial [Unknown]
  - Pulmonary embolism [Unknown]
  - Cellulitis [Unknown]
  - Haematuria [Unknown]
  - Chest pain [Unknown]

NARRATIVE: CASE EVENT DATE: 20090429
